FAERS Safety Report 12897217 (Version 1)
Quarter: 2016Q4

REPORT INFORMATION
  Report Type: Spontaneous
  Country: US (occurrence: US)
  Receive Date: 20161031
  Receipt Date: 20161031
  Transmission Date: 20170207
  Serious: No
  Sender: FDA-Public Use
  Company Number: US-JNJFOC-20160822790

PATIENT
  Sex: Male
  Weight: 70.31 kg

DRUGS (5)
  1. FENTANYL. [Suspect]
     Active Substance: FENTANYL
     Indication: MIGRAINE
     Route: 062
     Dates: start: 2016, end: 2016
  2. FENTANYL. [Suspect]
     Active Substance: FENTANYL
     Indication: MIGRAINE
     Dosage: AFTER 2 WEEKS
     Route: 062
     Dates: start: 2016, end: 2016
  3. FENTANYL. [Suspect]
     Active Substance: FENTANYL
     Indication: MIGRAINE
     Route: 062
     Dates: start: 2016, end: 2016
  4. FENTANYL. [Suspect]
     Active Substance: FENTANYL
     Indication: MIGRAINE
     Dosage: ALTERNATION EVERY 3 DAYS WITH FENTANYL 75 UG/HR
     Route: 062
     Dates: start: 2016
  5. FENTANYL. [Suspect]
     Active Substance: FENTANYL
     Indication: MIGRAINE
     Dosage: ALTERNATION EVERY 3 DAYS WITH FENTANYL 50 UG/HR
     Route: 062
     Dates: start: 2016

REACTIONS (4)
  - Feeling abnormal [Unknown]
  - Wrong technique in product usage process [Not Recovered/Not Resolved]
  - Drug ineffective [Not Recovered/Not Resolved]
  - Product adhesion issue [Not Recovered/Not Resolved]

NARRATIVE: CASE EVENT DATE: 2016
